FAERS Safety Report 7675386-5 (Version None)
Quarter: 2011Q3

REPORT INFORMATION
  Report Type: 
  Country: None (occurrence: None)
  Receive Date: 20110810
  Receipt Date: 20110808
  Transmission Date: 20111222
  Serious: Yes (Other)
  Sender: FDA-Public Use
  Company Number: US-PFIZER INC-2011182808

PATIENT
  Sex: Female
  Weight: 80.272 kg

DRUGS (3)
  1. VITAMIN D [Concomitant]
     Dosage: UNK
     Dates: start: 20010101
  2. CHANTIX [Suspect]
     Indication: SMOKING CESSATION THERAPY
     Dosage: 0.5 MG, DAILY
     Route: 048
     Dates: start: 20080101
  3. VITAMINS WITH MINERALS [Concomitant]
     Dosage: UNK
     Dates: start: 20010101

REACTIONS (1)
  - HYPERTENSION [None]
